FAERS Safety Report 7271861-6 (Version None)
Quarter: 2011Q1

REPORT INFORMATION
  Report Type: 
  Country: None (occurrence: None)
  Receive Date: 20110127
  Receipt Date: 20110127
  Transmission Date: 20110831
  Serious: Yes (Hospitalization)
  Sender: FDA-Public Use
  Company Number: LEO-2011-00101

PATIENT
  Sex: Female

DRUGS (7)
  1. STABLON (TIANEPTINE SODIUM) [Concomitant]
  2. DIGOXIN [Concomitant]
  3. KARDEGIC (ACETYLSALICYLATE LYSINE) [Concomitant]
  4. INNOHEP [Suspect]
     Indication: DEEP VEIN THROMBOSIS
     Dosage: (4500 IU (4500 IU), SUBCUTANEOUS
     Route: 058
  5. ALDACTONE [Concomitant]
  6. OMEPRAZOLE [Concomitant]
  7. IMONANE (ZOPICLONE) [Concomitant]

REACTIONS (3)
  - PULMONARY EMBOLISM [None]
  - DRUG EFFECT DECREASED [None]
  - DEEP VEIN THROMBOSIS [None]
